FAERS Safety Report 10934312 (Version 5)
Quarter: 2015Q3

REPORT INFORMATION
  Report Type: Spontaneous
  Country: JP (occurrence: JP)
  Receive Date: 20150320
  Receipt Date: 20150831
  Transmission Date: 20151125
  Serious: Yes (Hospitalization, Other)
  Sender: FDA-Public Use
  Company Number: JP-ROCHE-1553868

PATIENT
  Age: 54 Year
  Sex: Male
  Weight: 67 kg

DRUGS (17)
  1. LUCENTIS [Suspect]
     Active Substance: RANIBIZUMAB
     Dosage: IN BOTH EYES
     Route: 050
     Dates: start: 201412
  2. LUCENTIS [Suspect]
     Active Substance: RANIBIZUMAB
     Dosage: IN LEFT EYE
     Route: 050
     Dates: start: 20141125
  3. VOGLIBOSE [Concomitant]
     Active Substance: VOGLIBOSE
  4. LUCENTIS [Suspect]
     Active Substance: RANIBIZUMAB
     Dosage: IN LEFT EYE
     Route: 050
     Dates: start: 20140828
  5. LUCENTIS [Suspect]
     Active Substance: RANIBIZUMAB
     Dosage: IN RIGHT EYE
     Route: 050
     Dates: start: 20141104
  6. MOSAPRIDE [Concomitant]
     Active Substance: MOSAPRIDE
  7. LUCENTIS [Suspect]
     Active Substance: RANIBIZUMAB
     Indication: DIABETIC RETINAL OEDEMA
     Dosage: IN LEFT EYE
     Route: 050
     Dates: start: 20140916
  8. FUROSEMIDE. [Concomitant]
     Active Substance: FUROSEMIDE
  9. NESINA [Concomitant]
     Active Substance: ALOGLIPTIN BENZOATE
  10. LYRICA [Concomitant]
     Active Substance: PREGABALIN
  11. MICARDIS [Concomitant]
     Active Substance: TELMISARTAN
  12. MIYA-BM [Concomitant]
     Active Substance: CLOSTRIDIUM BUTYRICUM SPORES STRAIN M-55
  13. LUCENTIS [Suspect]
     Active Substance: RANIBIZUMAB
     Dosage: IN RIGHT EYE
     Route: 050
     Dates: start: 20141209
  14. LUCENTIS [Suspect]
     Active Substance: RANIBIZUMAB
     Dosage: IN RIGHT EYE
     Route: 050
     Dates: start: 20140925
  15. LUCENTIS [Suspect]
     Active Substance: RANIBIZUMAB
     Dosage: IN LEFT EYE
     Route: 050
     Dates: start: 20150224, end: 20150224
  16. PIOGLITAZONE. [Concomitant]
     Active Substance: PIOGLITAZONE
  17. GLUFAST [Concomitant]
     Active Substance: MITIGLINIDE

REACTIONS (10)
  - Red blood cell count decreased [Unknown]
  - Blood creatine phosphokinase increased [Unknown]
  - Blood lactate dehydrogenase increased [Unknown]
  - Seizure [Recovered/Resolved]
  - Alanine aminotransferase increased [Unknown]
  - Blood glucose increased [Unknown]
  - Body temperature decreased [Unknown]
  - Renal impairment [Not Recovered/Not Resolved]
  - Blood pressure systolic increased [Unknown]
  - Blood albumin decreased [Unknown]

NARRATIVE: CASE EVENT DATE: 20150309
